FAERS Safety Report 25449294 (Version 2)
Quarter: 2025Q3

REPORT INFORMATION
  Report Type: Spontaneous
  Country: CN (occurrence: CN)
  Receive Date: 20250618
  Receipt Date: 20250809
  Transmission Date: 20251020
  Serious: Yes (Hospitalization)
  Sender: ALEXION PHARMACEUTICALS
  Company Number: CN-ASTRAZENECA-202506CHN010127CN

PATIENT
  Age: 84 Year
  Sex: Female
  Weight: 58 kg

DRUGS (1)
  1. TAGRISSO [Suspect]
     Active Substance: OSIMERTINIB
     Indication: Lung neoplasm malignant
     Dosage: 80 MILLIGRAM, QD
     Dates: start: 20250424, end: 20250607

REACTIONS (5)
  - Platelet count decreased [Recovering/Resolving]
  - Haemorrhage subcutaneous [Recovering/Resolving]
  - Gingival bleeding [Recovering/Resolving]
  - Contusion [Recovering/Resolving]
  - Faecal occult blood positive [Recovering/Resolving]

NARRATIVE: CASE EVENT DATE: 20250601
